FAERS Safety Report 16796561 (Version 2)
Quarter: 2019Q4

REPORT INFORMATION
  Report Type: Spontaneous
  Country: GB (occurrence: GB)
  Receive Date: 20190911
  Receipt Date: 20191119
  Transmission Date: 20200122
  Serious: Yes (Hospitalization, Other)
  Sender: FDA-Public Use
  Company Number: GB-BAUSCH-BL-2019-024856

PATIENT
  Age: 71 Year
  Sex: Male

DRUGS (14)
  1. CLOPIXOL [Suspect]
     Active Substance: ZUCLOPENTHIXOL
     Indication: PRODUCT USED FOR UNKNOWN INDICATION
     Route: 065
  2. LEVETIRACETAM. [Concomitant]
     Active Substance: LEVETIRACETAM
     Indication: EPILEPSY
     Route: 065
  3. LORAZEPAM. [Concomitant]
     Active Substance: LORAZEPAM
     Indication: PRODUCT USED FOR UNKNOWN INDICATION
     Route: 065
  4. AMLODIPINE [Concomitant]
     Active Substance: AMLODIPINE BESYLATE
     Indication: PRODUCT USED FOR UNKNOWN INDICATION
     Route: 065
  5. PARACETAMOL [Concomitant]
     Active Substance: ACETAMINOPHEN
     Indication: PRODUCT USED FOR UNKNOWN INDICATION
     Route: 065
  6. CLOPIXOL [Suspect]
     Active Substance: ZUCLOPENTHIXOL
     Route: 065
  7. VALPROATE SEMISODIUM [Suspect]
     Active Substance: DIVALPROEX SODIUM
     Indication: PRODUCT USED FOR UNKNOWN INDICATION
     Route: 065
  8. SERTRALINE [Suspect]
     Active Substance: SERTRALINE HYDROCHLORIDE
     Indication: PRODUCT USED FOR UNKNOWN INDICATION
     Route: 065
  9. CLOPIXOL [Suspect]
     Active Substance: ZUCLOPENTHIXOL
     Route: 065
  10. CLOZAPINE. [Suspect]
     Active Substance: CLOZAPINE
     Indication: PRODUCT USED FOR UNKNOWN INDICATION
     Route: 065
  11. LORAZEPAM. [Concomitant]
     Active Substance: LORAZEPAM
     Indication: PRODUCT USED FOR UNKNOWN INDICATION
  12. CLOPIDOGREL [Concomitant]
     Active Substance: CLOPIDOGREL BISULFATE
     Indication: CARDIAC DISORDER
     Route: 065
  13. LORAZEPAM. [Suspect]
     Active Substance: LORAZEPAM
     Indication: PRODUCT USED FOR UNKNOWN INDICATION
     Dosage: 1 MG 4 TIMES A DAY, ^BUT ALSO BEEN TOLD IT IS 2 MG^, 1 (UNITS UNSPECIFIED) IN 6 HOURS.
     Route: 065
  14. HALOPERIODOL [Concomitant]
     Active Substance: HALOPERIDOL
     Indication: PRODUCT USED FOR UNKNOWN INDICATION
     Route: 065

REACTIONS (28)
  - Malaise [Unknown]
  - Sleep disorder [Unknown]
  - Seizure [Unknown]
  - Drug intolerance [Unknown]
  - Feeling abnormal [Unknown]
  - Mental disorder [Unknown]
  - Muscular weakness [Unknown]
  - Skull fracture [Unknown]
  - Obsessive-compulsive disorder [Unknown]
  - Anxiety [Unknown]
  - Agitation [Unknown]
  - Multiple fractures [Unknown]
  - Dysphonia [Unknown]
  - Adverse drug reaction [Unknown]
  - Movement disorder [Unknown]
  - Hallucination [Unknown]
  - Central nervous system lesion [Unknown]
  - Condition aggravated [Unknown]
  - Dyspnoea [Unknown]
  - Eye movement disorder [Unknown]
  - Heart rate irregular [Unknown]
  - Gait disturbance [Unknown]
  - Dysphagia [Unknown]
  - Incontinence [Unknown]
  - Hip fracture [Unknown]
  - Lower limb fracture [Unknown]
  - Syncope [Unknown]
  - Tremor [Unknown]
